FAERS Safety Report 20114760 (Version 3)
Quarter: 2021Q4

REPORT INFORMATION
  Report Type: Spontaneous
  Country: US (occurrence: US)
  Receive Date: 20211125
  Receipt Date: 20211227
  Transmission Date: 20220303
  Serious: No
  Sender: FDA-Public Use
  Company Number: US-SA-SAC20211120000075

PATIENT
  Sex: Male

DRUGS (1)
  1. DUPIXENT [Suspect]
     Active Substance: DUPILUMAB
     Dosage: 300 MG, BID
     Route: 058
     Dates: start: 20211106

REACTIONS (2)
  - Injection site pain [Not Recovered/Not Resolved]
  - Product use issue [Unknown]

NARRATIVE: CASE EVENT DATE: 20211106
